FAERS Safety Report 10626532 (Version 1)
Quarter: 2014Q4

REPORT INFORMATION
  Report Type: Report from Study
  Country: CA (occurrence: CA)
  Receive Date: 20141204
  Receipt Date: 20141204
  Transmission Date: 20150529
  Serious: Yes (Hospitalization)
  Sender: FDA-Public Use
  Company Number: CA-BRISTOL-MYERS SQUIBB COMPANY-21655311

PATIENT
  Age: 61 Year
  Sex: Female

DRUGS (8)
  1. SYNTHROID [Concomitant]
     Active Substance: LEVOTHYROXINE SODIUM
  2. GRAVOL [Concomitant]
     Active Substance: DIMENHYDRINATE
  3. KENALOG [Concomitant]
     Active Substance: TRIAMCINOLONE ACETONIDE
  4. ARAVA [Concomitant]
     Active Substance: LEFLUNOMIDE
  5. METHOTREXATE [Concomitant]
     Active Substance: METHOTREXATE
  6. ORENCIA [Suspect]
     Active Substance: ABATACEPT
     Indication: RHEUMATOID ARTHRITIS
     Route: 058
     Dates: start: 201406, end: 201411
  7. LEUCOVORIN [Concomitant]
     Active Substance: LEUCOVORIN
  8. COVERSYL PLUS [Concomitant]
     Active Substance: INDAPAMIDE\PERINDOPRIL

REACTIONS (2)
  - Blindness unilateral [Unknown]
  - Cerebrovascular accident [Unknown]

NARRATIVE: CASE EVENT DATE: 201411
